FAERS Safety Report 20825187 (Version 1)
Quarter: 2022Q2

REPORT INFORMATION
  Report Type: Other
  Country: GB (occurrence: GB)
  Receive Date: 20220513
  Receipt Date: 20220513
  Transmission Date: 20220720
  Serious: Yes (Other)
  Sender: FDA-Public Use
  Company Number: GB-MHRA-MED-202205011820308230-L03KS

PATIENT

DRUGS (1)
  1. HYDROXYCHLOROQUINE [Suspect]
     Active Substance: HYDROXYCHLOROQUINE
     Indication: Adverse drug reaction
     Dosage: 400 MILLIGRAM, QD AT NIGHT
     Route: 065
     Dates: start: 20220413, end: 20220430

REACTIONS (10)
  - Drug intolerance [Not Recovered/Not Resolved]
  - Dyspepsia [Unknown]
  - Rash [Unknown]
  - Blister [Unknown]
  - Swollen tongue [Unknown]
  - Fatigue [Unknown]
  - Nausea [Unknown]
  - Pruritus [Unknown]
  - Swelling [Unknown]
  - Lymphadenopathy [Unknown]
